FAERS Safety Report 17561259 (Version 1)
Quarter: 2020Q1

REPORT INFORMATION
  Report Type: Spontaneous
  Country: DE (occurrence: DE)
  Receive Date: 20200319
  Receipt Date: 20200319
  Transmission Date: 20200409
  Serious: Yes (Life-Threatening, Other)
  Sender: FDA-Public Use
  Company Number: DE-PFIZER INC-2020101188

PATIENT
  Age: 32 Year
  Sex: Female
  Weight: 65 kg

DRUGS (2)
  1. CYTOTEC [Suspect]
     Active Substance: MISOPROSTOL
     Indication: LABOUR INDUCTION
     Dosage: 6 DF, UNK
     Route: 048
     Dates: start: 20160820, end: 20160822
  2. MINPROSTIN [Concomitant]
     Active Substance: DINOPROSTONE
     Indication: LABOUR INDUCTION
     Dosage: 3 MG, UNK
     Route: 067
     Dates: start: 201608, end: 201608

REACTIONS (8)
  - Uterine haemorrhage [Unknown]
  - Uterine atony [Unknown]
  - Uterine tachysystole [Recovered/Resolved]
  - Product use in unapproved indication [Unknown]
  - Premature separation of placenta [Recovered/Resolved with Sequelae]
  - Haemorrhage [Recovered/Resolved with Sequelae]
  - Pain [Recovered/Resolved]
  - Off label use [Unknown]

NARRATIVE: CASE EVENT DATE: 20160820
